FAERS Safety Report 22140471 (Version 1)
Quarter: 2023Q1

REPORT INFORMATION
  Report Type: Spontaneous
  Country: US (occurrence: None)
  Receive Date: 20230324
  Receipt Date: 20230324
  Transmission Date: 20230418
  Serious: Yes (Life-Threatening)
  Sender: FDA-Public Use
  Company Number: None

PATIENT
  Age: 64 Year
  Sex: Male
  Weight: 135.9 kg

DRUGS (1)
  1. WEGOVY [Suspect]
     Active Substance: SEMAGLUTIDE
     Indication: Weight decreased
     Dosage: OTHER QUANTITY : 1 INJECTABLE;?OTHER FREQUENCY : WEEKLY;?OTHER ROUTE : INJECTIONS;?
     Route: 050
     Dates: start: 20230201, end: 20230307

REACTIONS (4)
  - Pancreatitis [None]
  - Gallbladder disorder [None]
  - Renal failure [None]
  - Hepatic enzyme abnormal [None]

NARRATIVE: CASE EVENT DATE: 20230304
